FAERS Safety Report 23446699 (Version 2)
Quarter: 2024Q1

REPORT INFORMATION
  Report Type: Spontaneous
  Country: CH (occurrence: CH)
  Receive Date: 20240126
  Receipt Date: 20240228
  Transmission Date: 20240410
  Serious: Yes (Death)
  Sender: FDA-Public Use
  Company Number: CH-BAYER-2024A015248

PATIENT
  Age: 88 Year
  Sex: Female

DRUGS (2)
  1. EYLEA [Suspect]
     Active Substance: AFLIBERCEPT
     Indication: Age-related macular degeneration
     Dosage: UNK, ONCE, SOLUTION FOR INJECTION, 40 MG/ML
     Dates: start: 20181009, end: 20181009
  2. EYLEA [Suspect]
     Active Substance: AFLIBERCEPT
     Dosage: UNK, ONCE, SOLUTION FOR INJECTION, 40 MG/ML
     Dates: start: 202301, end: 202301

REACTIONS (1)
  - Death [Fatal]
